FAERS Safety Report 23713546 (Version 1)
Quarter: 2024Q2

REPORT INFORMATION
  Report Type: Spontaneous
  Country: US (occurrence: US)
  Receive Date: 20240405
  Receipt Date: 20240405
  Transmission Date: 20240716
  Serious: Yes (Other)
  Sender: FDA-Public Use
  Company Number: US-BRISTOL-MYERS SQUIBB COMPANY-2024-050148

PATIENT
  Age: 66 Year
  Sex: Female

DRUGS (1)
  1. POMALYST [Suspect]
     Active Substance: POMALIDOMIDE
     Indication: Plasma cell myeloma
     Dosage: FREQUENCY:  1 TIME A DAY FOR 21 DAYS ON AND 7 DAYS OFF
     Route: 048
     Dates: start: 202403

REACTIONS (2)
  - Fatigue [Unknown]
  - Renal disorder [Unknown]

NARRATIVE: CASE EVENT DATE: 20240301
